FAERS Safety Report 4548595-1 (Version None)
Quarter: 2005Q1

REPORT INFORMATION
  Report Type: 
  Country: None (occurrence: None)
  Receive Date: 20050105
  Receipt Date: 20050105
  Transmission Date: 20050727
  Serious: No
  Sender: FDA-Public Use
  Company Number: None

PATIENT
  Age: 47 Year
  Sex: Male

DRUGS (2)
  1. LIDOCAINE JELLY 2% ASTRA / ZENECA [Suspect]
     Dosage: 1 X TOPICAL
     Route: 061
     Dates: start: 20041211
  2. BENZOCAINE SPRAY 20% BENT [Suspect]
     Indication: GASTROOESOPHAGEAL REFLUX DISEASE
     Dosage: 3-4 TIMES - TOPICAL
     Route: 061
     Dates: start: 20041211

REACTIONS (4)
  - CYANOSIS [None]
  - DYSPNOEA [None]
  - METHAEMOGLOBINAEMIA [None]
  - PROCEDURAL COMPLICATION [None]
